FAERS Safety Report 4550430-2 (Version None)
Quarter: 2005Q1

REPORT INFORMATION
  Report Type: 
  Country: None (occurrence: None)
  Receive Date: 20050112
  Receipt Date: 20041012
  Transmission Date: 20050727
  Serious: Yes (Other)
  Sender: FDA-Public Use
  Company Number: GB-GLAXOSMITHKLINE-B0347926A

PATIENT
  Age: 33 Year
  Sex: Male

DRUGS (1)
  1. PAROXETINE HCL [Suspect]
     Indication: DEPRESSION
     Dosage: 40MG UNKNOWN
     Route: 048
     Dates: start: 20040101, end: 20041015

REACTIONS (3)
  - AGGRESSION [None]
  - LEGAL PROBLEM [None]
  - PERSONALITY CHANGE [None]
